FAERS Safety Report 6369952-7 (Version None)
Quarter: 2009Q3

REPORT INFORMATION
  Report Type: 
  Country: None (occurrence: None)
  Receive Date: 20090923
  Receipt Date: 20080909
  Transmission Date: 20100115
  Serious: No
  Sender: FDA-Public Use
  Company Number: US-ASTRAZENECA-2004UW21129

PATIENT
  Age: 49 Year
  Sex: Male
  Weight: 122.5 kg

DRUGS (12)
  1. SEROQUEL [Suspect]
     Indication: THINKING ABNORMAL
     Dosage: 125-150 MG PER DAY
     Route: 048
  2. SEROQUEL [Suspect]
     Indication: DEPRESSION
     Dosage: 125-150 MG PER DAY
     Route: 048
  3. SEROQUEL [Suspect]
     Indication: SLEEP DISORDER
     Dosage: 125-150 MG PER DAY
     Route: 048
  4. SEROQUEL [Suspect]
     Route: 048
  5. SEROQUEL [Suspect]
     Route: 048
  6. SEROQUEL [Suspect]
     Route: 048
  7. LEXAPRO [Concomitant]
  8. XANAX [Concomitant]
  9. RESTORIL [Concomitant]
  10. ADVIL [Concomitant]
  11. ASPIRIN [Concomitant]
  12. TRAZODONE [Concomitant]

REACTIONS (7)
  - AGGRESSION [None]
  - IRRITABILITY [None]
  - MYALGIA [None]
  - NEUROTRANSMITTER LEVEL ALTERED [None]
  - NIGHTMARE [None]
  - PERSONALITY CHANGE [None]
  - STRESS [None]
